FAERS Safety Report 17601035 (Version 1)
Quarter: 2020Q1

REPORT INFORMATION
  Report Type: Spontaneous
  Country: FR (occurrence: FR)
  Receive Date: 20200331
  Receipt Date: 20200331
  Transmission Date: 20200409
  Serious: Yes (Hospitalization)
  Sender: FDA-Public Use
  Company Number: FR-SUN PHARMACEUTICAL INDUSTRIES LTD-2020RR-242194

PATIENT
  Age: 66 Year
  Sex: Male

DRUGS (8)
  1. CEFOTAXIME BASE [Suspect]
     Active Substance: CEFOTAXIME SODIUM
     Dosage: 500 MILLIGRAM
     Route: 042
     Dates: start: 20200209, end: 20200210
  2. CEFOTAXIME BASE [Suspect]
     Active Substance: CEFOTAXIME SODIUM
     Indication: LUNG DISORDER
     Dosage: 500 MILLIGRAM, BID
     Route: 042
     Dates: start: 20200129, end: 20200204
  3. VANCOMYCINE [Suspect]
     Active Substance: VANCOMYCIN
     Indication: LUNG DISORDER
     Dosage: 2.5 GRAM, QD
     Route: 042
     Dates: start: 20200205, end: 20200208
  4. LANSOPRAZOLE. [Suspect]
     Active Substance: LANSOPRAZOLE
     Indication: PRODUCT USED FOR UNKNOWN INDICATION
     Dosage: 15 MILLIGRAM, UNK
     Route: 048
     Dates: start: 20200202, end: 20200211
  5. GENTAMICINE [Suspect]
     Active Substance: GENTAMICIN
     Indication: LUNG DISORDER
     Dosage: 640 MILLIGRAM, QD
     Route: 042
     Dates: start: 20200205, end: 20200206
  6. ZARZIO [Concomitant]
     Active Substance: FILGRASTIM
     Indication: PRODUCT USED FOR UNKNOWN INDICATION
     Dosage: UNK
     Route: 065
  7. TAMIFLU [Suspect]
     Active Substance: OSELTAMIVIR PHOSPHATE
     Indication: LUNG DISORDER
     Dosage: MATIN ET SOIR
     Route: 048
     Dates: start: 20200130, end: 20200204
  8. TAZOCILLINE [Suspect]
     Active Substance: PIPERACILLIN SODIUM\TAZOBACTAM SODIUM
     Indication: LUNG DISORDER
     Dosage: 4 GRAM, QD
     Route: 042
     Dates: start: 20200205, end: 20200209

REACTIONS (2)
  - Purpura [Recovered/Resolved]
  - Rash maculo-papular [Recovering/Resolving]

NARRATIVE: CASE EVENT DATE: 20200209
